FAERS Safety Report 18406860 (Version 2)
Quarter: 2020Q4

REPORT INFORMATION
  Report Type: Spontaneous
  Country: FR (occurrence: FR)
  Receive Date: 20201021
  Receipt Date: 20201105
  Transmission Date: 20210114
  Serious: Yes (Death, Hospitalization)
  Sender: FDA-Public Use
  Company Number: FR-BEH-2020123703

PATIENT
  Age: 92 Year
  Sex: Female

DRUGS (1)
  1. HIZENTRA [Suspect]
     Active Substance: HUMAN IMMUNOGLOBULIN G
     Indication: IMMUNODEFICIENCY
     Dosage: UNK
     Route: 065
     Dates: start: 2014, end: 202010

REACTIONS (3)
  - General physical health deterioration [Fatal]
  - Renal failure [Fatal]
  - Generalised oedema [Unknown]

NARRATIVE: CASE EVENT DATE: 20201009
